FAERS Safety Report 9486920 (Version 2)
Quarter: 2013Q3

REPORT INFORMATION
  Report Type: Spontaneous
  Country: DE (occurrence: None)
  Receive Date: 20130823
  Receipt Date: 20130904
  Transmission Date: 20140515
  Serious: Yes (Death, Other)
  Sender: FDA-Public Use
  Company Number: AUR-APL-2013-06757

PATIENT
  Age: 69 Year
  Sex: Male

DRUGS (4)
  1. SIMVASTATIN (SIMVASTATIN) [Suspect]
     Indication: CORONARY ARTERY DISEASE
     Route: 048
  2. ATORVASTATIN (ATORVASTATIN) [Suspect]
     Indication: CORONARY ARTERY DISEASE
     Route: 048
  3. TORASEMIDE (TORASEMIDE) [Concomitant]
  4. ASS (ACETYLSALICYLIC ACID) [Concomitant]

REACTIONS (4)
  - Renal failure acute [None]
  - Rhabdomyolysis [None]
  - Overdose [None]
  - Drug interaction [None]
